FAERS Safety Report 5352375-7 (Version None)
Quarter: 2007Q2

REPORT INFORMATION
  Report Type: 
  Country: None (occurrence: None)
  Receive Date: 20070607
  Receipt Date: 20070530
  Transmission Date: 20071010
  Serious: Yes (Life-Threatening, Other)
  Sender: FDA-Public Use
  Company Number: 2007VX001280

PATIENT
  Sex: Male

DRUGS (4)
  1. PERMAX [Suspect]
     Indication: PARKINSON'S DISEASE
     Dates: start: 20000429, end: 20070404
  2. ARTANE [Concomitant]
  3. NEO DOPASTON [Concomitant]
  4. GLIMICRON [Concomitant]

REACTIONS (6)
  - AORTIC VALVE STENOSIS [None]
  - DYSPNOEA EXERTIONAL [None]
  - ELECTROCARDIOGRAM ABNORMAL [None]
  - ELECTROCARDIOGRAM ST SEGMENT ABNORMAL [None]
  - PLEURAL FIBROSIS [None]
  - VENTRICULAR HYPOKINESIA [None]
